FAERS Safety Report 5068829-7 (Version None)
Quarter: 2006Q3

REPORT INFORMATION
  Report Type: 
  Country: None (occurrence: None)
  Receive Date: 20060725
  Receipt Date: 20060710
  Transmission Date: 20061208
  Serious: Yes (Other)
  Sender: FDA-Public Use
  Company Number: 2005BH002380

PATIENT
  Sex: Female

DRUGS (1)
  1. TISSEEL VH KIT [Suspect]
     Indication: FACE LIFT

REACTIONS (2)
  - INDURATION [None]
  - POST PROCEDURAL COMPLICATION [None]
